FAERS Safety Report 20474474 (Version 1)
Quarter: 2022Q1

REPORT INFORMATION
  Report Type: Spontaneous
  Country: US (occurrence: None)
  Receive Date: 20220214
  Receipt Date: 20220214
  Transmission Date: 20220423
  Serious: Yes (Death)
  Sender: FDA-Public Use
  Company Number: None

PATIENT
  Sex: Female

DRUGS (4)
  1. XGEVA [Suspect]
     Active Substance: DENOSUMAB
     Indication: Breast cancer
     Dosage: OTHER QUANTITY : 120MG/1.7ML;?OTHER FREQUENCY : EVERY 3 MONTHS;?
     Route: 058
     Dates: start: 20210528, end: 20220211
  2. CAPECITABINE [Concomitant]
     Active Substance: CAPECITABINE
  3. ONDANSETRON TAB [Concomitant]
  4. PIQRAY [Concomitant]
     Active Substance: ALPELISIB

REACTIONS (1)
  - Death [None]
